FAERS Safety Report 11726370 (Version 1)
Quarter: 2015Q4

REPORT INFORMATION
  Report Type: Spontaneous
  Country: US (occurrence: US)
  Receive Date: 20151110
  Receipt Date: 20151110
  Transmission Date: 20160304
  Serious: No
  Sender: FDA-Public Use
  Company Number: US-ELI_LILLY_AND_COMPANY-US201111002166

PATIENT
  Sex: Female

DRUGS (1)
  1. FORTEO [Suspect]
     Active Substance: TERIPARATIDE
     Dosage: UNK, UNK

REACTIONS (23)
  - Asthenia [Unknown]
  - Musculoskeletal disorder [Unknown]
  - Pain in extremity [Unknown]
  - Sensory disturbance [Unknown]
  - Nausea [Unknown]
  - Tooth fracture [Unknown]
  - Eructation [Unknown]
  - Faecal volume increased [Unknown]
  - Muscular weakness [Unknown]
  - Breast pain [Unknown]
  - Pain [Unknown]
  - Bone density decreased [Unknown]
  - Skin mass [Unknown]
  - Constipation [Unknown]
  - Arthralgia [Unknown]
  - Nodule [Unknown]
  - Urine output increased [Unknown]
  - Pain of skin [Unknown]
  - Limb discomfort [Not Recovered/Not Resolved]
  - Tooth loss [Unknown]
  - Regurgitation [Unknown]
  - Gastrooesophageal reflux disease [Unknown]
  - Musculoskeletal pain [Unknown]
